FAERS Safety Report 7915176-9 (Version None)
Quarter: 2011Q4

REPORT INFORMATION
  Report Type: 
  Country: None (occurrence: None)
  Receive Date: 20111115
  Receipt Date: 20111108
  Transmission Date: 20120403
  Serious: Yes (Hospitalization)
  Sender: FDA-Public Use
  Company Number: SE-UCBSA-044550

PATIENT
  Age: 64 Year
  Sex: Female

DRUGS (17)
  1. ACETYLCYSTEINE ALTERNOVA [Concomitant]
     Dosage: 200 MG
  2. ATACAND [Concomitant]
     Dosage: 32 MG
  3. PREDNISOLONE [Concomitant]
  4. OMEPRAZOL ACTAVIS [Concomitant]
     Dosage: 20 MG
  5. REPAGLINIDE [Concomitant]
     Dosage: 2 MG
  6. SIMVASTATIN [Concomitant]
     Dosage: 40 MG
  7. FERROUS SULFATE TAB [Concomitant]
     Dosage: 100 MG FE2+
  8. DOXAZOSIN MESYLATE [Concomitant]
     Dosage: 4 MG
  9. ACTOS [Concomitant]
  10. EFFIENT [Concomitant]
     Dosage: 10 MG
  11. LEVOTHYROXINE SODIUM [Concomitant]
     Dosage: 100 MICROGRAM
  12. PLAQUENIL [Concomitant]
     Dosage: 200 MG
  13. FUROSEMIDE [Concomitant]
     Dosage: 40 MG
  14. CIMZIA [Suspect]
     Indication: RHEUMATOID ARTHRITIS
     Dosage: 400 MG
     Route: 058
     Dates: start: 20100721
  15. METOPROLOL ACTAVIS [Concomitant]
     Dosage: 200 MG
  16. JANUVIA [Concomitant]
     Dosage: 100 MG
  17. AMLODIPIN ACCORD [Concomitant]
     Dosage: 5 MG

REACTIONS (1)
  - PNEUMONIA LEGIONELLA [None]
